FAERS Safety Report 10243288 (Version 1)
Quarter: 2014Q2

REPORT INFORMATION
  Report Type: Spontaneous
  Country: US (occurrence: None)
  Receive Date: 20140616
  Receipt Date: 20140616
  Transmission Date: 20141212
  Serious: Yes (Life-Threatening, Hospitalization)
  Sender: FDA-Public Use
  Company Number: None

PATIENT
  Age: 81 Year
  Sex: Female
  Weight: 47.7 kg

DRUGS (3)
  1. IBRUTINIB [Suspect]
     Indication: CHRONIC LYMPHOCYTIC LEUKAEMIA
     Route: 048
     Dates: start: 20131215, end: 20140604
  2. AMLODIPINE(NORVASC) [Concomitant]
  3. ASPIRIN [Concomitant]

REACTIONS (1)
  - Cerebral haemorrhage [None]
